FAERS Safety Report 7407269-X (Version None)
Quarter: 2011Q2

REPORT INFORMATION
  Report Type: 
  Country: None (occurrence: None)
  Receive Date: 20110411
  Receipt Date: 20110330
  Transmission Date: 20111010
  Serious: Yes (Hospitalization)
  Sender: FDA-Public Use
  Company Number: PHHY2010VE80348

PATIENT
  Sex: Female

DRUGS (7)
  1. MILPAR [Concomitant]
  2. NEURONTIN [Concomitant]
  3. ACLASTA [Suspect]
     Indication: OSTEOPOROSIS
     Dosage: 5 MG
     Route: 042
     Dates: start: 20100720
  4. ENALAPRIL MALEATE [Concomitant]
     Indication: HYPERTENSION
  5. ALENDRONATE SODIUM [Concomitant]
  6. CALCIUM [Concomitant]
  7. OMEPRAZOLE [Concomitant]

REACTIONS (8)
  - BLADDER DISORDER [None]
  - BRONCHOPNEUMONIA [None]
  - WALKING AID USER [None]
  - FALL [None]
  - GAIT DISTURBANCE [None]
  - MOVEMENT DISORDER [None]
  - PAIN [None]
  - JOINT DISLOCATION [None]
